FAERS Safety Report 14013376 (Version 2)
Quarter: 2018Q1

REPORT INFORMATION
  Report Type: Spontaneous
  Country: US (occurrence: US)
  Receive Date: 20170926
  Receipt Date: 20180118
  Transmission Date: 20180508
  Serious: Yes (Other)
  Sender: FDA-Public Use
  Company Number: US-SA-2017SA175769

PATIENT
  Age: 16 Year
  Sex: Male
  Weight: 47.2 kg

DRUGS (2)
  1. ALLEGRA-D 24 HOUR [Suspect]
     Active Substance: FEXOFENADINE HYDROCHLORIDE\PSEUDOEPHEDRINE HYDROCHLORIDE
     Route: 048
     Dates: start: 20170906, end: 20170906
  2. IBUPROFEN. [Concomitant]
     Active Substance: IBUPROFEN
     Indication: OROPHARYNGEAL PAIN
     Route: 065
     Dates: start: 20170905, end: 20170906

REACTIONS (2)
  - Foreign body in respiratory tract [Unknown]
  - Vomiting [Unknown]

NARRATIVE: CASE EVENT DATE: 20170906
